FAERS Safety Report 22648657 (Version 1)
Quarter: 2023Q2

REPORT INFORMATION
  Report Type: Spontaneous
  Country: US (occurrence: US)
  Receive Date: 20230628
  Receipt Date: 20230628
  Transmission Date: 20230722
  Serious: No
  Sender: FDA-Public Use
  Company Number: US-Merck Healthcare KGaA-US_B-2023-246359-0900ccba808409c2

PATIENT
  Age: 54 Year
  Sex: Female

DRUGS (1)
  1. MAVENCLAD [Suspect]
     Active Substance: CLADRIBINE
     Indication: Relapsing-remitting multiple sclerosis
     Route: 048
     Dates: start: 202302

REACTIONS (3)
  - Multi-vitamin deficiency [Not Recovered/Not Resolved]
  - Malnutrition [Not Recovered/Not Resolved]
  - Multiple sclerosis [Not Recovered/Not Resolved]
